FAERS Safety Report 14010507 (Version 2)
Quarter: 2017Q4

REPORT INFORMATION
  Report Type: Spontaneous
  Country: US (occurrence: US)
  Receive Date: 20170926
  Receipt Date: 20171222
  Transmission Date: 20180321
  Serious: Yes (Death, Hospitalization, Other)
  Sender: FDA-Public Use
  Company Number: US-009507513-1709USA011874

PATIENT
  Age: 12 Year
  Sex: Male
  Weight: 69.4 kg

DRUGS (3)
  1. CUBICIN [Suspect]
     Active Substance: DAPTOMYCIN
     Indication: ENTEROCOCCAL INFECTION
     Dosage: 700 MG, QD
     Route: 042
     Dates: start: 20170911, end: 20170920
  2. CUBICIN [Suspect]
     Active Substance: DAPTOMYCIN
     Dosage: 700 MG, QD
     Route: 042
     Dates: start: 20170921
  3. SYNERCID [Suspect]
     Active Substance: DALFOPRISTIN\QUINUPRISTIN
     Indication: ENTEROCOCCAL INFECTION

REACTIONS (5)
  - Fungaemia [Fatal]
  - Therapy non-responder [Unknown]
  - Blood creatine phosphokinase increased [Recovered/Resolved]
  - Oral administration complication [Unknown]
  - Adverse event [Unknown]

NARRATIVE: CASE EVENT DATE: 20170918
